FAERS Safety Report 5839278-6 (Version None)
Quarter: 2008Q3

REPORT INFORMATION
  Report Type: 
  Country: None (occurrence: None)
  Receive Date: 20080806
  Receipt Date: 20080718
  Transmission Date: 20090109
  Serious: Yes (Hospitalization, Other)
  Sender: FDA-Public Use
  Company Number: AEGBR200800160

PATIENT
  Age: 54 Year
  Sex: Female

DRUGS (1)
  1. IGIV (MANUFACTURER UNKNOWN) (IMMUNE GLOBULIN IV (HUMAN), CAPRYLATE/CHR [Suspect]
     Indication: SELECTIVE IGG SUBCLASS DEFICIENCY
     Dosage: 21 GM; Q3W; IV
     Route: 042

REACTIONS (8)
  - HAEMORRHAGE [None]
  - HEADACHE [None]
  - MIGRAINE [None]
  - PHOTOPHOBIA [None]
  - SPEECH DISORDER [None]
  - SUPERIOR SAGITTAL SINUS THROMBOSIS [None]
  - TRANSVERSE SINUS THROMBOSIS [None]
  - VOMITING [None]
